FAERS Safety Report 14356080 (Version 11)
Quarter: 2020Q1

REPORT INFORMATION
  Report Type: Spontaneous
  Country: US (occurrence: US)
  Receive Date: 20180105
  Receipt Date: 20200226
  Transmission Date: 20200409
  Serious: Yes (Other)
  Sender: FDA-Public Use
  Company Number: US-CELLTRION INC.-2017US011135

PATIENT

DRUGS (14)
  1. INFLECTRA [Suspect]
     Active Substance: INFLIXIMAB-DYYB
     Dosage: 8 VIALS EVERY 4 WEEKS
     Route: 042
     Dates: start: 20171226, end: 20171226
  2. INFLECTRA [Suspect]
     Active Substance: INFLIXIMAB-DYYB
     Dosage: UNK
     Route: 065
     Dates: start: 20180206, end: 20180206
  3. INFLECTRA [Suspect]
     Active Substance: INFLIXIMAB-DYYB
     Dosage: 8 DF ((8 VIALS EVERY 4 WEEKS)
     Route: 065
     Dates: start: 20180306, end: 20180306
  4. INFLECTRA [Suspect]
     Active Substance: INFLIXIMAB-DYYB
     Dosage: 8 DF ((8 VIALS EVERY 4 WEEKS)
     Route: 065
     Dates: start: 20180611, end: 20180611
  5. INFLECTRA [Suspect]
     Active Substance: INFLIXIMAB-DYYB
     Dosage: UNK
     Route: 065
     Dates: start: 2018
  6. INFLECTRA [Suspect]
     Active Substance: INFLIXIMAB-DYYB
     Dosage: 10MG/KG, CYCLIC(EVERY 6 WEEKS)
     Route: 042
     Dates: start: 20171127, end: 20171127
  7. INFLECTRA [Suspect]
     Active Substance: INFLIXIMAB-DYYB
     Dosage: 10 MG/KG, CYCLIC  (8 VIALS )EVERY 4 WEEKS
     Route: 042
     Dates: start: 20171213, end: 20171213
  8. INFLECTRA [Suspect]
     Active Substance: INFLIXIMAB-DYYB
     Dosage: 800 MG Q 6 WEEKS
  9. INFLECTRA [Suspect]
     Active Substance: INFLIXIMAB-DYYB
     Dosage: UNK
  10. PREDNISONE. [Concomitant]
     Active Substance: PREDNISONE
     Dosage: UNK
  11. INFLECTRA [Suspect]
     Active Substance: INFLIXIMAB-DYYB
     Dosage: 8 DF ((8 VIALS EVERY 4 WEEKS)
     Route: 065
     Dates: start: 20180404, end: 20180404
  12. INFLECTRA [Suspect]
     Active Substance: INFLIXIMAB-DYYB
     Indication: CROHN^S DISEASE
     Dosage: 800MG, CYCLIC (EVERY 6 WEEKS)
     Route: 042
     Dates: start: 20170831, end: 20170831
  13. INFLECTRA [Suspect]
     Active Substance: INFLIXIMAB-DYYB
     Indication: RHEUMATOID ARTHRITIS
     Dosage: 10MG/KG, CYCLIC(EVERY 6 WEEKS)
     Route: 042
     Dates: start: 20171012, end: 20171012
  14. INFLECTRA [Suspect]
     Active Substance: INFLIXIMAB-DYYB
     Dosage: UNK
     Route: 065

REACTIONS (12)
  - Inappropriate schedule of product administration [Not Recovered/Not Resolved]
  - Malaise [Unknown]
  - Surgery [Unknown]
  - Product dose omission [Not Recovered/Not Resolved]
  - Dizziness [Unknown]
  - Pain [Unknown]
  - Tooth infection [Unknown]
  - Product prescribing issue [Unknown]
  - Product prescribing error [Unknown]
  - Therapeutic product effect decreased [Not Recovered/Not Resolved]
  - Arthralgia [Not Recovered/Not Resolved]
  - Ear infection [Unknown]

NARRATIVE: CASE EVENT DATE: 20171117
